FAERS Safety Report 4425191-8 (Version None)
Quarter: 2004Q3

REPORT INFORMATION
  Report Type: 
  Country: None (occurrence: None)
  Receive Date: 20040719
  Receipt Date: 20030417
  Transmission Date: 20050211
  Serious: Yes (Hospitalization)
  Sender: FDA-Public Use
  Company Number: 172123

PATIENT
  Age: 59 Year
  Sex: Female
  Weight: 125 kg

DRUGS (6)
  1. AVONEX [Suspect]
     Indication: MULTIPLE SCLEROSIS
     Dosage: 30 MCG QW IM
     Route: 030
     Dates: start: 19960901
  2. ESTRATEST [Concomitant]
  3. ZOVIRAX ^BURROUGHS^ [Concomitant]
  4. DOXEPIN HCL [Concomitant]
  5. VALIUM [Concomitant]
  6. ZOLOFT [Concomitant]

REACTIONS (3)
  - INFLUENZA LIKE ILLNESS [None]
  - MULTIPLE SCLEROSIS RELAPSE [None]
  - VERTIGO [None]
